FAERS Safety Report 8512767-1 (Version None)
Quarter: 2012Q3

REPORT INFORMATION
  Report Type: 
  Country: None (occurrence: None)
  Receive Date: 20120716
  Receipt Date: 20120709
  Transmission Date: 20120928
  Serious: Yes (Life-Threatening, Hospitalization, Other)
  Sender: FDA-Public Use
  Company Number: US-BAYER-2012-045001

PATIENT
  Age: 69 Year
  Sex: Female
  Weight: 73.968 kg

DRUGS (14)
  1. MODERATELY SELECTIVE JANUS-KINASE-3 INHIBITOR [Suspect]
     Indication: RHEUMATOID ARTHRITIS
     Dosage: 10 MG, BID
     Route: 048
     Dates: start: 20120226
  2. ATENOLOL [Concomitant]
     Indication: HYPERTENSION
     Dosage: DAILY DOSE 50 MG
     Route: 048
     Dates: start: 20060602
  3. HYDROCODONE BITARTRATE + ACETAMINOPHEN [Concomitant]
     Indication: ARTHRALGIA
     Dosage: 5/325 MG PRN
     Route: 048
     Dates: start: 20120405, end: 20120407
  4. ACETAMINOPHEN [Concomitant]
     Indication: RHEUMATOID ARTHRITIS
     Dosage: 1300 MG, PRN
     Route: 048
     Dates: start: 20040714
  5. IBUPROFEN [Concomitant]
     Indication: RHEUMATOID ARTHRITIS
     Dosage: 200 MG, PRN
     Route: 048
     Dates: start: 20040714
  6. ALEVE [Suspect]
     Indication: RHEUMATOID ARTHRITIS
     Dosage: 440 MG, BID
     Route: 048
     Dates: start: 20090810, end: 20120420
  7. ACETAMINOPHEN AND OXYCODONE HCL [Concomitant]
     Indication: BACK PAIN
     Dosage: 500-5 MG, Q 8 HRS
     Route: 048
     Dates: start: 20111117
  8. DULCOLAX [Concomitant]
     Indication: CONSTIPATION
     Dosage: 1 TO 2 TABS DAILY
     Route: 048
     Dates: start: 20111124
  9. MULTI-VITAMIN [Concomitant]
     Indication: PROPHYLAXIS
     Dosage: 1 DF, QD
     Route: 048
     Dates: start: 19920101
  10. KEPPRA [Concomitant]
     Indication: PROPHYLAXIS
     Dosage: 500 MG, BID
     Route: 048
     Dates: start: 20120405
  11. CLONIDINE [Concomitant]
     Indication: HYPERTENSION
     Dosage: 0.1 MG, ONCE
     Route: 048
     Dates: start: 20120405
  12. TORADOL [Concomitant]
     Indication: HEADACHE
     Dosage: 60 MG, ONCE
     Route: 030
     Dates: start: 20120405
  13. CHONDROITIN W/GLUCOSAMINE [Concomitant]
     Indication: PROPHYLAXIS
     Dosage: DAILY DOSE 1500 MG
     Route: 048
     Dates: start: 20040714
  14. CALCIUM W/VITAMIN D NOS [Concomitant]
     Indication: OSTEOPENIA
     Dosage: 1 DF, QD
     Route: 048
     Dates: start: 20040415

REACTIONS (4)
  - HEADACHE [None]
  - CEREBRAL HAEMATOMA [None]
  - CEREBRAL THROMBOSIS [None]
  - HYPERTENSION [None]
